FAERS Safety Report 7261530-0 (Version None)
Quarter: 2011Q1

REPORT INFORMATION
  Report Type: 
  Country: None (occurrence: None)
  Receive Date: 20110130
  Receipt Date: 20100917
  Transmission Date: 20110831
  Serious: No
  Sender: FDA-Public Use
  Company Number: US-ABBOTT-10P-163-0672639-00

PATIENT
  Sex: Female
  Weight: 58.112 kg

DRUGS (1)
  1. HUMIRA [Suspect]
     Indication: COLITIS ULCERATIVE
     Dates: start: 20090601

REACTIONS (7)
  - HYPERHIDROSIS [None]
  - LIMB DISCOMFORT [None]
  - INJECTION SITE VESICLES [None]
  - LOSS OF CONSCIOUSNESS [None]
  - ARTHRALGIA [None]
  - INJECTION SITE PAIN [None]
  - NAUSEA [None]
